FAERS Safety Report 6511337-4 (Version None)
Quarter: 2009Q4

REPORT INFORMATION
  Report Type: 
  Country: None (occurrence: None)
  Receive Date: 20091222
  Receipt Date: 20090302
  Transmission Date: 20100525
  Serious: No
  Sender: FDA-Public Use
  Company Number: US-ASTRAZENECA-2009UW05666

PATIENT
  Age: 64 Year
  Sex: Female
  Weight: 74.4 kg

DRUGS (7)
  1. CRESTOR [Suspect]
     Indication: BLOOD CHOLESTEROL INCREASED
     Route: 048
     Dates: start: 20090119, end: 20090101
  2. CRESTOR [Suspect]
     Route: 048
     Dates: start: 20090201, end: 20090226
  3. OMEPRAZOLE [Concomitant]
  4. ATENOLOL [Concomitant]
  5. VITAMINS [Concomitant]
  6. DIURETIC [Concomitant]
  7. BETABLOCKER [Concomitant]

REACTIONS (4)
  - BLOOD PRESSURE INCREASED [None]
  - HEADACHE [None]
  - NAUSEA [None]
  - RED BLOOD CELL SEDIMENTATION RATE INCREASED [None]
